FAERS Safety Report 11251557 (Version 2)
Quarter: 2015Q3

REPORT INFORMATION
  Report Type: Spontaneous
  Country: US (occurrence: US)
  Receive Date: 20150708
  Receipt Date: 20150903
  Transmission Date: 20151125
  Serious: Yes (Other)
  Sender: FDA-Public Use
  Company Number: US-ELI_LILLY_AND_COMPANY-US201204007146

PATIENT
  Sex: Female

DRUGS (3)
  1. HUMALOG [Suspect]
     Active Substance: INSULIN LISPRO
     Indication: TYPE 1 DIABETES MELLITUS
     Dosage: UNK, UNKNOWN
     Route: 058
  2. GLUCAGON. [Suspect]
     Active Substance: GLUCAGON
     Indication: HYPOGLYCAEMIA
     Dosage: UNK, UNKNOWN
  3. DILUENT [Suspect]
     Active Substance: WATER
     Dosage: UNK, UNKNOWN

REACTIONS (2)
  - Wrong drug administered [Unknown]
  - Hypoglycaemia [Unknown]
